FAERS Safety Report 5526109-7 (Version None)
Quarter: 2007Q4

REPORT INFORMATION
  Report Type: 
  Country: None (occurrence: None)
  Receive Date: 20071120
  Receipt Date: 20071102
  Transmission Date: 20080405
  Serious: Yes (Other)
  Sender: FDA-Public Use
  Company Number: 2007S1011482

PATIENT
  Age: 35 Year
  Sex: Female

DRUGS (3)
  1. ISOTRETINOIN [Suspect]
     Dosage: 20 MG; CAPSULE; ORAL;DAILY
     Route: 048
     Dates: start: 20070911
  2. DIAZEPAM [Concomitant]
  3. IBUPROFEN [Concomitant]

REACTIONS (7)
  - AMENORRHOEA [None]
  - BACK PAIN [None]
  - BREAST SWELLING [None]
  - DRY SKIN [None]
  - HOT FLUSH [None]
  - INCREASED APPETITE [None]
  - MUSCLE CONTRACTURE [None]
